FAERS Safety Report 18115214 (Version 3)
Quarter: 2020Q4

REPORT INFORMATION
  Report Type: Spontaneous
  Country: DE (occurrence: DE)
  Receive Date: 20200805
  Receipt Date: 20201216
  Transmission Date: 20210113
  Serious: Yes (Life-Threatening, Other)
  Sender: FDA-Public Use
  Company Number: DE-MYLANLABS-2020M1069111

PATIENT
  Sex: Female

DRUGS (2)
  1. FASTJEKT [Suspect]
     Active Substance: EPINEPHRINE
     Indication: ANAPHYLACTIC SHOCK
     Dosage: UNK
     Dates: start: 20200724, end: 20200724
  2. JEXT [Suspect]
     Active Substance: EPINEPHRINE BITARTRATE
     Indication: ANAPHYLACTIC SHOCK
     Dosage: 300 MICROGRAM, QD
     Route: 030
     Dates: start: 20200724, end: 20200724

REACTIONS (3)
  - Drug dose omission by device [Recovered/Resolved]
  - Needle issue [Unknown]
  - Device failure [Unknown]

NARRATIVE: CASE EVENT DATE: 20200724
